FAERS Safety Report 8168387-4 (Version None)
Quarter: 2012Q1

REPORT INFORMATION
  Report Type: 
  Country: None (occurrence: None)
  Receive Date: 20120227
  Receipt Date: 20120220
  Transmission Date: 20120608
  Serious: Yes (Hospitalization, Disabling, Other)
  Sender: FDA-Public Use
  Company Number: DE-MERCK-1201DEU00035

PATIENT
  Age: 81 Year
  Sex: Female
  Weight: 80 kg

DRUGS (8)
  1. BISOPROLOL [Concomitant]
     Indication: CORONARY ARTERY DISEASE
     Route: 048
  2. LEVOTHYROXINE SODIUM [Concomitant]
     Indication: HYPOTHYROIDISM
     Route: 048
  3. CLOPIDOGREL [Concomitant]
     Indication: CORONARY ARTERY DISEASE
     Route: 048
  4. VALSARTAN [Concomitant]
     Indication: HYPERTENSIVE HEART DISEASE
     Route: 048
  5. ZOCOR [Suspect]
     Dosage: REDUCED DOSAGE
     Route: 048
     Dates: start: 20101201, end: 20111201
  6. SPIRONOLACTONE [Concomitant]
     Indication: CARDIAC DISORDER
     Route: 048
  7. ZOCOR [Suspect]
     Indication: CORONARY ARTERY DISEASE
     Route: 048
     Dates: start: 20100601, end: 20101201
  8. ASPIRIN [Concomitant]
     Indication: CORONARY ARTERY DISEASE
     Route: 048

REACTIONS (11)
  - TRANSIENT ISCHAEMIC ATTACK [None]
  - AUTONOMIC NEUROPATHY [None]
  - SPONDYLOLISTHESIS [None]
  - RENAL FAILURE ACUTE [None]
  - PERIPHERAL SENSORY NEUROPATHY [None]
  - LUMBAR SPINAL STENOSIS [None]
  - RHABDOMYOLYSIS [None]
  - CARDIAC FAILURE [None]
  - HEMIPARESIS [None]
  - INTERVERTEBRAL DISC PROTRUSION [None]
  - ACUTE MYOCARDIAL INFARCTION [None]
